FAERS Safety Report 7103787-2 (Version None)
Quarter: 2010Q4

REPORT INFORMATION
  Report Type: 
  Country: None (occurrence: None)
  Receive Date: 20101115
  Receipt Date: 20101101
  Transmission Date: 20110411
  Serious: Yes (Hospitalization, Other)
  Sender: FDA-Public Use
  Company Number: JP-ROCHE-741042

PATIENT
  Age: 58 Year
  Sex: Female

DRUGS (14)
  1. BEVACIZUMAB [Suspect]
     Dosage: UNK
     Route: 031
     Dates: start: 20100531
  2. RANIBIZUMAB [Suspect]
     Dosage: 0.05 ML, UNKNOWN
     Route: 031
     Dates: start: 20090817
  3. RANIBIZUMAB [Suspect]
     Dosage: 0.05 ML, UNKNOWN
     Route: 031
     Dates: start: 20100326
  4. RANIBIZUMAB [Suspect]
     Dosage: 0.05 ML, UNK
     Route: 031
     Dates: start: 20091019
  5. RANIBIZUMAB [Suspect]
     Dosage: 0.05 ML, UNK
     Route: 031
     Dates: start: 20100426
  6. RANIBIZUMAB [Suspect]
     Dosage: 0.05 ML, UNK
     Route: 031
     Dates: start: 20090914
  7. RANIBIZUMAB [Suspect]
     Dosage: 0.05 ML, UNK
     Route: 031
     Dates: start: 20100201
  8. RANIBIZUMAB [Suspect]
     Dosage: 0.05 ML, UNK
     Route: 031
     Dates: start: 20100215
  9. LEVOFLOXACIN [Concomitant]
     Dosage: UNK
     Dates: start: 20090801, end: 20100401
  10. HYALEIN [Concomitant]
     Dosage: UNK
     Dates: start: 20090824, end: 20100406
  11. FLUMETHOLON [Concomitant]
     Dosage: UNK
     Dates: start: 20090916, end: 20100317
  12. HYALURONATE SODIUM [Concomitant]
     Dosage: UNK
     Dates: start: 20100413
  13. METHYLPREDNISOLONE ACETATE [Concomitant]
  14. NEOMYCIN SULFATE [Concomitant]
     Dosage: UNK
     Dates: start: 20100327

REACTIONS (4)
  - CONJUNCTIVITIS [None]
  - DRY EYE [None]
  - IRIDOCYCLITIS [None]
  - OCULAR HYPERAEMIA [None]
